FAERS Safety Report 24582860 (Version 2)
Quarter: 2024Q4

REPORT INFORMATION
  Report Type: Report from Study
  Country: IE (occurrence: IE)
  Receive Date: 20241106
  Receipt Date: 20241110
  Transmission Date: 20250114
  Serious: Yes (Hospitalization, Other)
  Sender: ROCHE
  Company Number: IE-ROCHE-10000124165

PATIENT
  Sex: Female

DRUGS (1)
  1. OCREVUS [Suspect]
     Active Substance: OCRELIZUMAB
     Indication: Product used for unknown indication
     Route: 042

REACTIONS (3)
  - Hernia [Recovered/Resolved]
  - Wound infection [Recovered/Resolved]
  - Mobility decreased [Recovered/Resolved]
